FAERS Safety Report 6624226-1 (Version None)
Quarter: 2010Q1

REPORT INFORMATION
  Report Type: 
  Country: None (occurrence: None)
  Receive Date: 20100310
  Receipt Date: 20091102
  Transmission Date: 20100710
  Serious: Yes (Hospitalization)
  Sender: FDA-Public Use
  Company Number: US-BIOGENIDEC-2009BI035398

PATIENT
  Age: 44 Year
  Sex: Female

DRUGS (8)
  1. AVONEX [Suspect]
     Indication: MULTIPLE SCLEROSIS
     Route: 030
     Dates: start: 20020101, end: 20030101
  2. AVONEX [Suspect]
     Route: 030
     Dates: start: 20030101
  3. DEPLIN [Concomitant]
     Indication: MEMORY IMPAIRMENT
     Route: 048
  4. CYMBALTA [Concomitant]
     Indication: DEPRESSION
     Route: 048
  5. TOPAMAX [Concomitant]
     Indication: DEPRESSION
     Route: 048
  6. XANAX [Concomitant]
     Indication: DEPRESSION
     Route: 048
  7. PAXIL [Concomitant]
     Indication: BIPOLAR DISORDER
     Route: 048
  8. ZANAFLEX [Concomitant]
     Indication: MUSCLE SPASMS
     Route: 048

REACTIONS (10)
  - DECREASED APPETITE [None]
  - FATIGUE [None]
  - MEMORY IMPAIRMENT [None]
  - MULTIPLE SCLEROSIS [None]
  - MULTIPLE SCLEROSIS RELAPSE [None]
  - MUSCLE SPASMS [None]
  - NAUSEA [None]
  - NEUROPATHY PERIPHERAL [None]
  - VITAMIN B12 DECREASED [None]
  - WEIGHT DECREASED [None]
